FAERS Safety Report 22946419 (Version 3)
Quarter: 2023Q4

REPORT INFORMATION
  Report Type: Report from Study
  Country: US (occurrence: None)
  Receive Date: 20230915
  Receipt Date: 20231106
  Transmission Date: 20240110
  Serious: Yes (Other)
  Sender: FDA-Public Use
  Company Number: US-ROCHE-3190688

PATIENT
  Age: 84 Year
  Sex: Female
  Weight: 55 kg

DRUGS (22)
  1. RANIBIZUMAB [Suspect]
     Active Substance: RANIBIZUMAB
     Indication: Neovascular age-related macular degeneration
     Dosage: ON 10/MAY/2021, PATIENT ADMINISTERED, FIRST DOSE OF STUDY DRUG AT DOSE OF 100 MG/ML. DOSE LAST STUDY
     Route: 050
     Dates: start: 20210510
  2. RANIBIZUMAB [Suspect]
     Active Substance: RANIBIZUMAB
  3. RANIBIZUMAB [Suspect]
     Active Substance: RANIBIZUMAB
  4. RANIBIZUMAB [Suspect]
     Active Substance: RANIBIZUMAB
  5. RANIBIZUMAB [Suspect]
     Active Substance: RANIBIZUMAB
  6. RANIBIZUMAB [Concomitant]
     Active Substance: RANIBIZUMAB
     Dosage: ON 08/JUN/2021, PATIENT RECEIVED, FIRST DOSE OF STUDY DRUG FIRST ADMINISTERED- 10 MG/ML, START DATE
     Route: 050
     Dates: start: 20210608
  7. AREDS 2 FORMULA [Concomitant]
     Indication: Age-related macular degeneration
     Dosage: DOSE UNIT-TABLET
     Route: 048
     Dates: start: 2018
  8. AREDS 2 FORMULA [Concomitant]
     Dosage: DOSE UNIT-TABLET
     Route: 048
     Dates: start: 2018
  9. TIMOLOL MALEATE [Concomitant]
     Active Substance: TIMOLOL MALEATE
     Dosage: DOSE UNIT-GTT
     Route: 047
     Dates: start: 2018
  10. LUMIGAN [Concomitant]
     Active Substance: BIMATOPROST
     Dosage: DOSE UNIT-GTT
     Route: 047
     Dates: start: 2018
  11. LEXAPRO [Concomitant]
     Active Substance: ESCITALOPRAM OXALATE
     Indication: Anxiety
     Route: 048
     Dates: start: 2016
  12. RANITIDINE [Concomitant]
     Active Substance: RANITIDINE
     Indication: Gastrooesophageal reflux disease
     Dosage: DOSE UNIT-TABLET
     Route: 048
     Dates: start: 2016
  13. VITAMIN D3 [Concomitant]
     Active Substance: CHOLECALCIFEROL
     Route: 048
     Dates: start: 2018
  14. MELATONIN [Concomitant]
     Active Substance: MELATONIN
     Indication: Insomnia
     Dosage: DOSE UNIT-TABLET
     Route: 048
     Dates: start: 2018
  15. FOCUS FACTOR [Concomitant]
     Route: 048
     Dates: start: 2018
  16. DIGESTIVE AID (UNK INGREDIENTS) [Concomitant]
     Indication: Gastrooesophageal reflux disease
     Route: 048
     Dates: start: 2018
  17. OMEGA 3 [Concomitant]
     Active Substance: CAPSAICIN
     Indication: Anxiety
     Dosage: DOSE UNIT-TBSP
     Route: 048
     Dates: start: 2018
  18. VITAMIN B12 [Concomitant]
     Active Substance: CYANOCOBALAMIN
     Indication: Asthenia
     Route: 048
     Dates: start: 2018
  19. METOPROLOL [Concomitant]
     Active Substance: METOPROLOL
     Indication: Cardiac failure
     Dates: start: 202011
  20. VIGAMOX [Concomitant]
     Active Substance: MOXIFLOXACIN HYDROCHLORIDE
     Dates: start: 20211101
  21. TIMOLOL [Concomitant]
     Active Substance: TIMOLOL
     Indication: Intraocular pressure test
     Dates: start: 20211101
  22. OFLOXACIN [Concomitant]
     Active Substance: OFLOXACIN
     Dosage: DOSE UNIT-GTT
     Route: 047
     Dates: start: 20230901

REACTIONS (2)
  - Conjunctival disorder [Recovered/Resolved]
  - Conjunctival bleb [Not Recovered/Not Resolved]

NARRATIVE: CASE EVENT DATE: 20220926
